FAERS Safety Report 5564877-9 (Version None)
Quarter: 2007Q4

REPORT INFORMATION
  Report Type: 
  Country: None (occurrence: None)
  Receive Date: 20071214
  Receipt Date: 20071214
  Transmission Date: 20080405
  Serious: Yes (Other)
  Sender: FDA-Public Use
  Company Number: None

PATIENT
  Sex: Female
  Weight: 90.7194 kg

DRUGS (1)
  1. REMICADE [Suspect]
     Indication: PSORIATIC ARTHROPATHY
     Dosage: 500MG 0,2 AND 6 WK IV DRIP  THREE INFUSIONS
     Route: 041
     Dates: start: 20070814, end: 20070924

REACTIONS (1)
  - AUTOIMMUNE HEPATITIS [None]
